FAERS Safety Report 15558470 (Version 1)
Quarter: 2018Q4

REPORT INFORMATION
  Report Type: Spontaneous
  Country: US (occurrence: US)
  Receive Date: 20181028
  Receipt Date: 20181028
  Transmission Date: 20190205
  Serious: No
  Sender: FDA-Public Use
  Company Number: US-VIFOR (INTERNATIONAL) INC.-VIT-2018-10427

PATIENT
  Sex: Male

DRUGS (1)
  1. VELTASSA [Suspect]
     Active Substance: PATIROMER
     Indication: BLOOD POTASSIUM INCREASED
     Dosage: 1 PACKET DAILY 5 DAYS A WEEK (DO NOT TAKE ON DIALYSIS DAYS)
     Dates: start: 2018

REACTIONS (3)
  - Off label use [Unknown]
  - Drug ineffective [Unknown]
  - Blood potassium increased [Unknown]
